FAERS Safety Report 14327198 (Version 3)
Quarter: 2018Q1

REPORT INFORMATION
  Report Type: Report from Study
  Country: CA (occurrence: CA)
  Receive Date: 20171227
  Receipt Date: 20180129
  Transmission Date: 20180509
  Serious: Yes (Other)
  Sender: FDA-Public Use
  Company Number: PHHY2017CA104652

PATIENT
  Age: 42 Year
  Sex: Male

DRUGS (5)
  1. COSENTYX [Suspect]
     Active Substance: SECUKINUMAB
     Dosage: 300 MG, QMO
     Route: 058
     Dates: start: 20170708
  2. COSENTYX [Suspect]
     Active Substance: SECUKINUMAB
     Indication: PSORIASIS
     Dosage: 300 MG, QW
     Route: 058
     Dates: start: 20161211, end: 20170101
  3. ZOLOFT [Suspect]
     Active Substance: SERTRALINE HYDROCHLORIDE
     Indication: ANXIETY
     Dosage: UNK
     Route: 065
  4. COSENTYX [Suspect]
     Active Substance: SECUKINUMAB
     Dosage: 300 MG, QMO
     Route: 058
     Dates: start: 20171108
  5. COSENTYX [Suspect]
     Active Substance: SECUKINUMAB
     Dosage: 300 MG, QMO
     Route: 058
     Dates: start: 20170108

REACTIONS (16)
  - Rash [Unknown]
  - Peripheral swelling [Unknown]
  - Swelling [Unknown]
  - Somnolence [Unknown]
  - Weight increased [Unknown]
  - Oedema peripheral [Unknown]
  - Psoriasis [Unknown]
  - Hydrocele [Recovering/Resolving]
  - Impaired healing [Unknown]
  - Vitamin D decreased [Recovering/Resolving]
  - Fluid retention [Unknown]
  - Waist circumference increased [Unknown]
  - Post procedural swelling [Unknown]
  - Eyelid ptosis [Unknown]
  - Insomnia [Unknown]
  - Drug effect incomplete [Unknown]

NARRATIVE: CASE EVENT DATE: 201706
